FAERS Safety Report 7959600-4 (Version None)
Quarter: 2011Q4

REPORT INFORMATION
  Report Type: 
  Country: None (occurrence: None)
  Receive Date: 20111201
  Receipt Date: 20111117
  Transmission Date: 20120403
  Serious: Yes (Death, Hospitalization)
  Sender: FDA-Public Use
  Company Number: UCM201111-000076

PATIENT
  Age: 40 Year
  Sex: Male

DRUGS (3)
  1. TOPIRAMATE [Suspect]
     Indication: CONVULSION
  2. DIVALPROEX SODIUM [Suspect]
  3. ROSIGLITAZONE MALEATE AND METFORMIN HCL [Suspect]

REACTIONS (8)
  - CARDIAC ARREST [None]
  - MYOCARDIAL INFARCTION [None]
  - SUPRAVENTRICULAR TACHYCARDIA [None]
  - DRY SKIN [None]
  - UNRESPONSIVE TO STIMULI [None]
  - RESPIRATORY RATE INCREASED [None]
  - MYOCARDIAL ISCHAEMIA [None]
  - HYPERTHERMIA [None]
